FAERS Safety Report 10921317 (Version 1)
Quarter: 2015Q1

REPORT INFORMATION
  Report Type: Spontaneous
  Country: US (occurrence: None)
  Receive Date: 20150312
  Receipt Date: 20150312
  Transmission Date: 20150721
  Serious: Yes (Hospitalization, Other)
  Sender: FDA-Public Use
  Company Number: 2014-20771

PATIENT
  Age: 56 Year
  Sex: Male

DRUGS (1)
  1. AFLIBERCEPT [Suspect]
     Active Substance: AFLIBERCEPT
     Indication: DIABETIC RETINAL OEDEMA
     Dosage: PER PROTOCOL
     Route: 031
     Dates: start: 20130115

REACTIONS (1)
  - Chest pain [None]

NARRATIVE: CASE EVENT DATE: 20141030
